FAERS Safety Report 6206901-6 (Version None)
Quarter: 2009Q2

REPORT INFORMATION
  Report Type: 
  Country: None (occurrence: None)
  Receive Date: 20090528
  Receipt Date: 20090515
  Transmission Date: 20091009
  Serious: Yes (Hospitalization)
  Sender: FDA-Public Use
  Company Number: A0771661A

PATIENT
  Age: 55 Year
  Sex: Male
  Weight: 100 kg

DRUGS (6)
  1. AVANDIA [Suspect]
     Dosage: 8MG PER DAY
     Route: 048
     Dates: start: 20050401, end: 20070701
  2. COZAAR [Concomitant]
  3. CALCIUM [Concomitant]
  4. CRESTOR [Concomitant]
     Dosage: 20MG PER DAY
  5. ZOCOR [Concomitant]
  6. INSULIN [Concomitant]

REACTIONS (7)
  - ARTERIOSCLEROSIS [None]
  - CARDIOGENIC SHOCK [None]
  - CARDIOMEGALY [None]
  - CORONARY ARTERY DISEASE [None]
  - HYPERTENSION [None]
  - MYOCARDIAL INFARCTION [None]
  - VENTRICULAR FIBRILLATION [None]
